FAERS Safety Report 5877467-5 (Version None)
Quarter: 2008Q3

REPORT INFORMATION
  Report Type: 
  Country: None (occurrence: None)
  Receive Date: 20080909
  Receipt Date: 20080825
  Transmission Date: 20090109
  Serious: Yes (Hospitalization)
  Sender: FDA-Public Use
  Company Number: 2008S1014334

PATIENT
  Age: 76 Year
  Sex: Male

DRUGS (7)
  1. METHOTREXATE TABLETS, USP (2.5 MG) [Suspect]
     Indication: POLYMYALGIA RHEUMATICA
     Dosage: 2.5 MG; 3 TIMES A DAY; ORAL
     Route: 048
     Dates: start: 20080721, end: 20080726
  2. METHOTREXATE TABLETS, USP (2.5 MG) [Suspect]
     Indication: RHEUMATOID ARTHRITIS
     Dosage: 2.5 MG; 3 TIMES A DAY; ORAL
     Route: 048
     Dates: start: 20080721, end: 20080726
  3. METOPROLOL TARTRATE [Concomitant]
  4. METFORMIN HCL [Concomitant]
  5. CORTICOSTEROID NOS [Concomitant]
  6. DIOVAN /01319601/ [Concomitant]
  7. COUMADIN /0014802/ [Concomitant]

REACTIONS (11)
  - ABSCESS INTESTINAL [None]
  - ACCIDENTAL OVERDOSE [None]
  - ANORECTAL DISORDER [None]
  - BLISTER [None]
  - BLOOD TEST ABNORMAL [None]
  - FULL BLOOD COUNT DECREASED [None]
  - GENERALISED ERYTHEMA [None]
  - HEADACHE [None]
  - PHOTOPHOBIA [None]
  - PRURITUS GENERALISED [None]
  - STOMATITIS [None]
